FAERS Safety Report 9478275 (Version 2)
Quarter: 2013Q4

REPORT INFORMATION
  Report Type: Report from Study
  Country: JP (occurrence: JP)
  Receive Date: 20130827
  Receipt Date: 20131030
  Transmission Date: 20140711
  Serious: Yes (Other)
  Sender: FDA-Public Use
  Company Number: JP-AMGEN-JPNCT2013060030

PATIENT
  Age: 80 Year
  Sex: Female
  Weight: 43 kg

DRUGS (22)
  1. DARBEPOETIN ALFA [Suspect]
     Indication: NEPHROGENIC ANAEMIA
     Dosage: 60 MUG, QD
     Route: 058
     Dates: start: 20110509, end: 20110509
  2. DARBEPOETIN ALFA [Suspect]
     Dosage: 40 MUG, Q4WK
     Route: 058
     Dates: start: 20110606, end: 20110801
  3. DARBEPOETIN ALFA [Suspect]
     Dosage: 40 MUG, QD
     Route: 058
     Dates: start: 20110907, end: 20110907
  4. DARBEPOETIN ALFA [Suspect]
     Dosage: 40 MUG, Q4WK
     Route: 058
     Dates: start: 20111012, end: 20111109
  5. DARBEPOETIN ALFA [Suspect]
     Dosage: 40 MUG, Q4WK
     Route: 058
     Dates: start: 20111228, end: 20120222
  6. DARBEPOETIN ALFA [Suspect]
     Dosage: 40 MUG, Q4WK
     Route: 058
     Dates: start: 20120328, end: 20120620
  7. DARBEPOETIN ALFA [Suspect]
     Dosage: 40 MUG, QD
     Route: 058
     Dates: start: 20120721, end: 20120721
  8. DARBEPOETIN ALFA [Suspect]
     Dosage: 40 MUG, QD
     Route: 058
     Dates: start: 20120822, end: 20120822
  9. DARBEPOETIN ALFA [Suspect]
     Dosage: 40 MUG, Q4WK
     Route: 058
     Dates: start: 20121030, end: 20121128
  10. DARBEPOETIN ALFA [Suspect]
     Dosage: 60 MUG, Q4WK
     Route: 058
     Dates: start: 20121225, end: 20130123
  11. DARBEPOETIN ALFA [Suspect]
     Dosage: 60 MUG, Q2WK
     Route: 058
     Dates: start: 20130206, end: 20130220
  12. DARBEPOETIN ALFA [Suspect]
     Dosage: 60 MUG, Q2WK
     Route: 058
     Dates: start: 20130311, end: 20130422
  13. LASIX [Concomitant]
     Dosage: UNK
     Route: 048
  14. NORVASC [Concomitant]
     Dosage: UNK
     Route: 048
  15. ZYLORIC [Concomitant]
     Dosage: UNK
     Route: 048
  16. KREMEZIN [Concomitant]
     Indication: NEPHROSCLEROSIS
     Dosage: UNK
     Route: 048
  17. ALLEGRA [Concomitant]
     Dosage: UNK
     Route: 048
  18. VENAPASTA [Concomitant]
     Dosage: UNK
     Route: 061
  19. PAXIL [Concomitant]
     Dosage: UNK
     Route: 048
  20. ARICEPT [Concomitant]
     Dosage: UNK
     Route: 048
  21. FEBURIC [Concomitant]
     Dosage: UNK
     Route: 048
  22. VENA PASTA [Concomitant]
     Dosage: UNK
     Route: 061

REACTIONS (2)
  - Dementia Alzheimer^s type [Not Recovered/Not Resolved]
  - Depression [Not Recovered/Not Resolved]
